FAERS Safety Report 23343901 (Version 3)
Quarter: 2024Q1

REPORT INFORMATION
  Report Type: Spontaneous
  Country: NL (occurrence: NL)
  Receive Date: 20231227
  Receipt Date: 20240208
  Transmission Date: 20240409
  Serious: Yes (Death)
  Sender: FDA-Public Use
  Company Number: 23_00027086(0)

PATIENT
  Age: 62 Year
  Sex: Male

DRUGS (4)
  1. DEXMEDETOMIDINE HYDROCHLORIDE [Suspect]
     Active Substance: DEXMEDETOMIDINE HYDROCHLORIDE
     Indication: Delirium
     Dosage: INFOPL/INFVLST CONC 100 MCG/ML. DOSE 4MCG/ML PERFUSOR 2-8ML/L HOUR IV
     Route: 042
     Dates: start: 20231203, end: 20231203
  2. HALOPERIDOL [Concomitant]
     Active Substance: HALOPERIDOL
     Indication: Product used for unknown indication
     Dosage: 1 MILLIGRAM
     Route: 065
  3. METOPROLOL [Concomitant]
     Active Substance: METOPROLOL
     Indication: Supraventricular tachycardia
     Dosage: 12.5 MILLIGRAM
     Route: 065
  4. MAGNESIUM [Concomitant]
     Active Substance: MAGNESIUM
     Indication: Product used for unknown indication
     Dosage: 2 GRAM
     Route: 065

REACTIONS (3)
  - Pulseless electrical activity [Fatal]
  - Sudden cardiac death [Fatal]
  - Bradycardia [Fatal]

NARRATIVE: CASE EVENT DATE: 20231203
